FAERS Safety Report 22519126 (Version 1)
Quarter: 2023Q2

REPORT INFORMATION
  Report Type: Spontaneous
  Country: US (occurrence: None)
  Receive Date: 20230603
  Receipt Date: 20230603
  Transmission Date: 20230721
  Serious: Yes (Hospitalization, Other)
  Sender: FDA-Public Use
  Company Number: None

PATIENT
  Age: 80 Year
  Sex: Female
  Weight: 51.75 kg

DRUGS (7)
  1. ENTRECTINIB [Suspect]
     Active Substance: ENTRECTINIB
     Indication: Small cell carcinoma
     Dosage: OTHER QUANTITY : 3 CAPSULE(S);?FREQUENCY : DAILY;?
     Route: 048
     Dates: start: 20230512, end: 20230517
  2. VITAMINS [Concomitant]
     Active Substance: VITAMINS
  3. CALCIUM CITRATE [Concomitant]
     Active Substance: CALCIUM CITRATE
  4. BONE UP [Concomitant]
  5. VITAMIN C [Concomitant]
     Active Substance: ASCORBIC ACID
  6. Hair skin and nails [Concomitant]
  7. pro biotic [Concomitant]

REACTIONS (12)
  - Balance disorder [None]
  - Vision blurred [None]
  - Swelling [None]
  - Oedema [None]
  - Vomiting [None]
  - Taste disorder [None]
  - Cough [None]
  - Pneumonia [None]
  - Paraesthesia [None]
  - Paraesthesia [None]
  - Pain in extremity [None]
  - Pain in extremity [None]

NARRATIVE: CASE EVENT DATE: 20230517
